FAERS Safety Report 9286229 (Version 1)
Quarter: 2013Q2

REPORT INFORMATION
  Report Type: Spontaneous
  Country: NZ (occurrence: NZ)
  Receive Date: 20130513
  Receipt Date: 20130513
  Transmission Date: 20140414
  Serious: Yes (Other)
  Sender: FDA-Public Use
  Company Number: PHHY2013NZ046083

PATIENT
  Age: 74 Year
  Sex: Female

DRUGS (5)
  1. ZOLEDRONIC ACID [Suspect]
     Dosage: UNK UKN, UNK
  2. LEVOTHYROXINE [Concomitant]
     Dosage: UNK UKN, UNK
     Route: 048
  3. E VITAMIN [Concomitant]
     Dosage: UNK UKN, UNK
     Route: 048
  4. COLECALCIFEROL [Concomitant]
     Dosage: UNK UKN, UNK
     Route: 048
  5. CALCIUM CARBONATE [Concomitant]
     Dosage: UNK UKN, UNK
     Route: 048

REACTIONS (5)
  - Delirium [Unknown]
  - Synovitis [Unknown]
  - Myalgia [Unknown]
  - Pyrexia [Unknown]
  - Vomiting [Unknown]
